FAERS Safety Report 7381807-8 (Version None)
Quarter: 2011Q1

REPORT INFORMATION
  Report Type: 
  Country: None (occurrence: None)
  Receive Date: 20110329
  Receipt Date: 20110324
  Transmission Date: 20110831
  Serious: Yes (Hospitalization, Other)
  Sender: FDA-Public Use
  Company Number: US-PFIZER INC-2010103040

PATIENT
  Sex: Female

DRUGS (3)
  1. ZOLOFT [Suspect]
     Dosage: 100 MG, UNK
  2. ZOLOFT [Suspect]
     Dosage: 200 MG, UNK
  3. NEURONTIN [Suspect]
     Dosage: UNK
     Dates: end: 20100701

REACTIONS (3)
  - DEMENTIA [None]
  - AMNESIA [None]
  - DEPRESSION [None]
